FAERS Safety Report 23751757 (Version 1)
Quarter: 2024Q2

REPORT INFORMATION
  Report Type: Spontaneous
  Country: NL (occurrence: NL)
  Receive Date: 20240417
  Receipt Date: 20240417
  Transmission Date: 20240716
  Serious: Yes (Death, Other)
  Sender: FDA-Public Use
  Company Number: NL-UCBSA-8006953

PATIENT
  Age: 78 Year
  Sex: Female

DRUGS (4)
  1. KEPPRA [Suspect]
     Active Substance: LEVETIRACETAM
     Indication: Epilepsy
     Dosage: 250 MG, 2X/DAY (BID)
     Route: 048
     Dates: start: 20040608, end: 20040704
  2. NORVASC [Suspect]
     Active Substance: AMLODIPINE BESYLATE
     Indication: Product used for unknown indication
     Dosage: 5 MILLIGRAM, ONCE DAILY (QD)
     Route: 048
  3. TEGRETOL [Suspect]
     Active Substance: CARBAMAZEPINE
     Indication: Product used for unknown indication
     Dosage: 300 MG, 2X/DAY (BID)
     Route: 048
     Dates: start: 200209, end: 200405
  4. AMOXICILLINUM [Concomitant]
     Indication: Product used for unknown indication
     Dosage: 500 MG, 3X/DAY (TID)
     Route: 048
     Dates: start: 20040622, end: 20040702

REACTIONS (1)
  - Completed suicide [Fatal]

NARRATIVE: CASE EVENT DATE: 20040704
